FAERS Safety Report 5468531-3 (Version None)
Quarter: 2007Q3

REPORT INFORMATION
  Report Type: 
  Country: None (occurrence: None)
  Receive Date: 20070926
  Receipt Date: 20070823
  Transmission Date: 20080115
  Serious: No
  Sender: FDA-Public Use
  Company Number: US-BRISTOL-MYERS SQUIBB COMPANY-13887575

PATIENT
  Age: 50 Year
  Sex: Female
  Weight: 98 kg

DRUGS (5)
  1. ORENCIA [Suspect]
     Indication: RHEUMATOID ARTHRITIS
     Route: 042
     Dates: start: 20060901, end: 20070710
  2. SYNTHROID [Concomitant]
  3. OXYCONTIN [Concomitant]
  4. MORPHINE SULFATE [Concomitant]
  5. AMBIEN [Concomitant]

REACTIONS (2)
  - HYPERHIDROSIS [None]
  - SWELLING [None]
